FAERS Safety Report 8803551 (Version 3)
Quarter: 2012Q4

REPORT INFORMATION
  Report Type: 
  Country: SE (occurrence: SE)
  Receive Date: 20120924
  Receipt Date: 20121218
  Transmission Date: 20130627
  Serious: Yes (Other)
  Sender: FDA-Public Use
  Company Number: SE-PFIZER INC-2012231748

PATIENT
  Age: 44 Year
  Sex: Female

DRUGS (2)
  1. LYRICA [Suspect]
     Indication: PAIN
     Dosage: 75 mg, 1x/day
     Route: 048
     Dates: start: 20120223, end: 20121017
  2. LYRICA [Suspect]
     Indication: SLEEP DISTURBANCE

REACTIONS (4)
  - Pituitary tumour benign [Not Recovered/Not Resolved]
  - Disturbance in attention [Unknown]
  - Dizziness [Unknown]
  - Speech disorder [Unknown]
